FAERS Safety Report 24237384 (Version 1)
Quarter: 2024Q3

REPORT INFORMATION
  Report Type: Spontaneous
  Country: US (occurrence: US)
  Receive Date: 20240822
  Receipt Date: 20240822
  Transmission Date: 20241016
  Serious: No
  Sender: MERCK
  Company Number: US-009507513-2408USA005473

PATIENT
  Sex: Female

DRUGS (1)
  1. MOLNUPIRAVIR [Suspect]
     Active Substance: MOLNUPIRAVIR
     Dosage: 800 MILLIGRAM, Q12H/ 4 CAPSULES EVERY 12 HOURS FOR 5 DAYS
     Dates: start: 20240811

REACTIONS (6)
  - Product packaging quantity issue [Unknown]
  - Incorrect dose administered [Unknown]
  - Product availability issue [Unknown]
  - Product expiration date issue [Unknown]
  - Expired product administered [Unknown]
  - No adverse event [Unknown]

NARRATIVE: CASE EVENT DATE: 20240811
